FAERS Safety Report 20790733 (Version 1)
Quarter: 2022Q2

REPORT INFORMATION
  Report Type: Spontaneous
  Country: US (occurrence: None)
  Receive Date: 20220505
  Receipt Date: 20220505
  Transmission Date: 20220720
  Serious: Yes (Disabling, Other)
  Sender: FDA-Public Use
  Company Number: None

PATIENT
  Age: 53 Year
  Sex: Female
  Weight: 77.4 kg

DRUGS (11)
  1. RENFLEXIS [Suspect]
     Active Substance: INFLIXIMAB-ABDA
     Indication: Colitis ulcerative
     Dosage: OTHER FREQUENCY : EVERY 6 WEEKS;?
     Route: 042
     Dates: start: 20220311
  2. RENFLEXIS [Suspect]
     Active Substance: INFLIXIMAB-ABDA
     Indication: Arthritis enteropathic
  3. RENFLEXIS [Suspect]
     Active Substance: INFLIXIMAB-ABDA
     Indication: Ankylosing spondylitis
  4. TRAZODONE [Concomitant]
     Active Substance: TRAZODONE HYDROCHLORIDE
  5. AZATHIOPRINE [Concomitant]
     Active Substance: AZATHIOPRINE
  6. Metropalol [Concomitant]
  7. LEXAPRO [Concomitant]
     Active Substance: ESCITALOPRAM OXALATE
  8. SINGULAIR [Concomitant]
     Active Substance: MONTELUKAST SODIUM
  9. OMEORIZOL [Concomitant]
  10. VITAMIN D3 [Concomitant]
     Active Substance: CHOLECALCIFEROL
  11. MAGNESIUM [Concomitant]
     Active Substance: MAGNESIUM

REACTIONS (18)
  - Insurance issue [None]
  - Product substitution issue [None]
  - Impaired work ability [None]
  - Loss of personal independence in daily activities [None]
  - Pain in extremity [None]
  - Pain in extremity [None]
  - Feeling hot [None]
  - Feeling hot [None]
  - Peripheral swelling [None]
  - Peripheral swelling [None]
  - Fatigue [None]
  - Diarrhoea haemorrhagic [None]
  - Bedridden [None]
  - Dysstasia [None]
  - Nausea [None]
  - Muscle spasms [None]
  - Joint contracture [None]
  - Condition aggravated [None]

NARRATIVE: CASE EVENT DATE: 20220427
